FAERS Safety Report 9411112 (Version 1)
Quarter: 2013Q3

REPORT INFORMATION
  Report Type: Spontaneous
  Country: US (occurrence: US)
  Receive Date: 20130721
  Receipt Date: 20130721
  Transmission Date: 20140515
  Serious: Yes (Hospitalization)
  Sender: FDA-Public Use
  Company Number: US-MYLANLABS-2013S1015302

PATIENT
  Age: 31 Year
  Sex: Male
  Weight: 168.5 kg

DRUGS (9)
  1. VANCOMYCIN [Suspect]
     Indication: CELLULITIS
     Route: 042
  2. CEFEPIME [Concomitant]
     Indication: CELLULITIS
     Route: 042
  3. METRONIDAZOLE [Concomitant]
     Indication: CELLULITIS
     Route: 042
  4. PIPERACILLIN W/TAZOBACTAM          /01606301/ [Concomitant]
     Indication: CELLULITIS
     Route: 065
  5. METFORMIN [Concomitant]
     Indication: TYPE 2 DIABETES MELLITUS
     Route: 065
  6. NOVOLIN [Concomitant]
     Indication: TYPE 2 DIABETES MELLITUS
     Route: 065
  7. LISINOPRIL [Concomitant]
     Indication: HYPERTENSION
     Dosage: 10MG DAILY
     Route: 065
  8. AMOXI-CLAVULANICO [Concomitant]
     Route: 048
  9. CIPROFLOXACIN [Concomitant]
     Route: 065

REACTIONS (2)
  - Nephropathy toxic [Recovering/Resolving]
  - Renal tubular necrosis [Recovering/Resolving]
